FAERS Safety Report 6664069-6 (Version None)
Quarter: 2010Q2

REPORT INFORMATION
  Report Type: 
  Country: None (occurrence: None)
  Receive Date: 20100401
  Receipt Date: 20100330
  Transmission Date: 20101027
  Serious: Yes (Other)
  Sender: FDA-Public Use
  Company Number: A0852672A

PATIENT
  Age: 58 Year
  Sex: Female

DRUGS (6)
  1. ADVAIR DISKUS 100/50 [Suspect]
     Indication: ASTHMA
     Dosage: 1PUFF TWICE PER DAY
     Route: 055
     Dates: start: 20030101
  2. FLONASE [Suspect]
     Indication: NASAL CONGESTION
     Dosage: 2SPR PER DAY
     Route: 045
     Dates: start: 20030101
  3. VENTOLIN [Suspect]
     Indication: ASTHMA
     Dosage: 2PUFF AS REQUIRED
     Route: 055
     Dates: start: 20030101
  4. ZYRTEC [Concomitant]
  5. SUDAFED NON-DROWSY [Concomitant]
  6. VITAMIN B COMPLEX CAP [Concomitant]

REACTIONS (3)
  - HYPERSENSITIVITY [None]
  - LUNG INFECTION [None]
  - PULMONARY FIBROSIS [None]
